FAERS Safety Report 9063649 (Version 1)
Quarter: 2013Q1

REPORT INFORMATION
  Report Type: Report from Study
  Country: US (occurrence: US)
  Receive Date: 20130131
  Receipt Date: 20130131
  Transmission Date: 20140127
  Serious: No
  Sender: FDA-Public Use
  Company Number: US-ABBOTT-12P-163-1006706-00

PATIENT
  Age: 48 Year
  Sex: Female

DRUGS (12)
  1. HUMIRA [Suspect]
     Indication: CROHN^S DISEASE
     Dosage: LOADING DOSE
     Dates: start: 20121010, end: 20121010
  2. HUMIRA [Suspect]
     Dosage: LOADING DOSE
     Dates: start: 20121024, end: 20121024
  3. HUMIRA [Suspect]
     Dosage: LOADING DOSE
     Dates: start: 20121029, end: 20121029
  4. HUMIRA [Suspect]
  5. XIFAXAN [Suspect]
  6. DEXILANT [Concomitant]
     Indication: PRODUCT USED FOR UNKNOWN INDICATION
  7. GENERIC ARICEPT [Concomitant]
     Indication: MEMORY IMPAIRMENT
  8. PRISTIQ [Concomitant]
     Indication: DEPRESSION
  9. LIPITOR [Concomitant]
     Indication: CARDIAC DISORDER
  10. QUASENSE [Concomitant]
     Indication: CONTRACEPTION
  11. XANAX [Concomitant]
     Indication: ANXIETY
  12. XANAX [Concomitant]
     Indication: PANIC DISORDER

REACTIONS (7)
  - Abdominal distension [Not Recovered/Not Resolved]
  - Injection site pain [Not Recovered/Not Resolved]
  - Pain [Not Recovered/Not Resolved]
  - Drug ineffective [Unknown]
  - Diarrhoea [Not Recovered/Not Resolved]
  - Abdominal distension [Not Recovered/Not Resolved]
  - Wrong technique in drug usage process [Not Recovered/Not Resolved]
